FAERS Safety Report 24992513 (Version 2)
Quarter: 2025Q1

REPORT INFORMATION
  Report Type: Spontaneous
  Country: US (occurrence: US)
  Receive Date: 20250220
  Receipt Date: 20250313
  Transmission Date: 20250408
  Serious: Yes (Other)
  Sender: MALLINCKRODT
  Company Number: US-MALLINCKRODT-MNK202500835

PATIENT
  Age: 59 Year
  Sex: Female
  Weight: 126 kg

DRUGS (3)
  1. CORTICOTROPIN [Suspect]
     Active Substance: CORTICOTROPIN
     Indication: Systemic lupus erythematosus
     Route: 058
     Dates: start: 202108
  2. CORTICOTROPIN [Suspect]
     Active Substance: CORTICOTROPIN
     Route: 058
     Dates: start: 202403
  3. RINVOQ [Concomitant]
     Active Substance: UPADACITINIB

REACTIONS (1)
  - Surgery [Unknown]
